FAERS Safety Report 17515464 (Version 1)
Quarter: 2020Q1

REPORT INFORMATION
  Report Type: Report from Study
  Country: DE (occurrence: DE)
  Receive Date: 20200309
  Receipt Date: 20200309
  Transmission Date: 20200409
  Serious: Yes (Death, Other)
  Sender: FDA-Public Use
  Company Number: DE-ROCHE-2559966

PATIENT

DRUGS (8)
  1. SOFOSBUVIR [Suspect]
     Active Substance: SOFOSBUVIR
     Indication: CHRONIC HEPATITIS C
     Route: 065
  2. DASABUVIR [Suspect]
     Active Substance: DASABUVIR
     Indication: CHRONIC HEPATITIS C
     Route: 065
  3. RIBAVIRIN. [Suspect]
     Active Substance: RIBAVIRIN
     Indication: CHRONIC HEPATITIS C
  4. SIMEPREVIR [Suspect]
     Active Substance: SIMEPREVIR
     Indication: CHRONIC HEPATITIS C
     Route: 065
  5. OMBITASVIR;PARITAPREVIR;RITONAVIR [Suspect]
     Active Substance: OMBITASVIR\PARITAPREVIR\RITONAVIR
     Indication: CHRONIC HEPATITIS C
     Route: 065
  6. LEDIPASVIR [Suspect]
     Active Substance: LEDIPASVIR
     Indication: CHRONIC HEPATITIS C
     Route: 065
  7. RIBAVIRIN. [Suspect]
     Active Substance: RIBAVIRIN
     Indication: CHRONIC HEPATITIS C
     Route: 065
  8. DACLATASVIR. [Suspect]
     Active Substance: DACLATASVIR
     Indication: CHRONIC HEPATITIS C
     Route: 065

REACTIONS (24)
  - Diarrhoea [Unknown]
  - Pneumonia [Unknown]
  - Pleural effusion [Unknown]
  - Depressed mood [Unknown]
  - Restlessness [Unknown]
  - Anaemia [Unknown]
  - Nausea [Unknown]
  - Abdominal discomfort [Unknown]
  - Skin disorder [Unknown]
  - Headache [Unknown]
  - Dyspnoea [Unknown]
  - Alopecia [Unknown]
  - Aspartate aminotransferase abnormal [Unknown]
  - Dehydration [Unknown]
  - Endocarditis [Fatal]
  - Renal impairment [Unknown]
  - Coronary arterial stent insertion [Unknown]
  - Insomnia [Unknown]
  - Blood bilirubin abnormal [Unknown]
  - Alanine aminotransferase abnormal [Unknown]
  - Myocarditis [Fatal]
  - Hypertensive crisis [Unknown]
  - Fatigue [Unknown]
  - Pruritus [Unknown]
